FAERS Safety Report 4383476-8 (Version None)
Quarter: 2004Q2

REPORT INFORMATION
  Report Type: 
  Country: None (occurrence: None)
  Receive Date: 20040623
  Receipt Date: 20040614
  Transmission Date: 20050107
  Serious: Yes (Hospitalization)
  Sender: FDA-Public Use
  Company Number: 200412335FR

PATIENT
  Age: 26 Year
  Sex: Female

DRUGS (8)
  1. BIRODOGYL [Suspect]
     Route: 048
     Dates: start: 20040406, end: 20040418
  2. DI-ANTALVIC [Suspect]
  3. CODOLIPRANE [Suspect]
     Route: 048
     Dates: end: 20040422
  4. TOPREC [Suspect]
     Route: 048
     Dates: end: 20040422
  5. ACETAMINOPHEN [Suspect]
     Route: 048
     Dates: end: 20040422
  6. VOLTAREN [Suspect]
     Route: 048
     Dates: end: 20040422
  7. SURGAM [Concomitant]
     Route: 048
     Dates: end: 20040422
  8. ZALDIAR [Suspect]

REACTIONS (2)
  - COLITIS ULCERATIVE [None]
  - PANCREATITIS ACUTE [None]
